FAERS Safety Report 4845952-0 (Version None)
Quarter: 2005Q4

REPORT INFORMATION
  Report Type: 
  Country: None (occurrence: None)
  Receive Date: 20051201
  Receipt Date: 20051115
  Transmission Date: 20060501
  Serious: Yes (Other)
  Sender: FDA-Public Use
  Company Number: SE200511001209

PATIENT
  Age: 49 Year
  Sex: Male

DRUGS (7)
  1. CYMBALTA [Suspect]
     Dosage: SEE IMAGE
     Route: 048
     Dates: start: 20051011
  2. CYMBALTA [Suspect]
     Dosage: SEE IMAGE
     Route: 048
     Dates: start: 20051107
  3. ZOPICLONE (ZOPICLONE) [Concomitant]
  4. HEMINEVRIN (CLOMETHIAZOLE EDISILATE) [Concomitant]
  5. THERALEN (ALIMEMAZINE TARTRATE) [Concomitant]
  6. PROPAVAN (PROPIOMAZINE MALEATE) [Concomitant]
  7. NOZINAN/NET/(LEVOMEPROMAZINE) [Concomitant]

REACTIONS (5)
  - ANXIETY [None]
  - CONCOMITANT DISEASE AGGRAVATED [None]
  - DECREASED APPETITE [None]
  - DRUG INEFFECTIVE [None]
  - INSOMNIA [None]
